FAERS Safety Report 16108478 (Version 1)
Quarter: 2019Q1

REPORT INFORMATION
  Report Type: Spontaneous
  Country: US (occurrence: US)
  Receive Date: 20190323
  Receipt Date: 20190323
  Transmission Date: 20190418
  Serious: No
  Sender: FDA-Public Use
  Company Number: US-JNJFOC-20190305248

PATIENT
  Sex: Male
  Weight: 71.67 kg

DRUGS (2)
  1. KETOCONAZOLE. [Suspect]
     Active Substance: KETOCONAZOLE
     Indication: ONYCHOMYCOSIS
     Route: 048
  2. KETOCONAZOLE. [Suspect]
     Active Substance: KETOCONAZOLE
     Indication: ONYCHOMYCOSIS
     Route: 048

REACTIONS (3)
  - Wrong technique in product usage process [Unknown]
  - Dry mouth [Unknown]
  - Off label use [Unknown]
